FAERS Safety Report 11914768 (Version 1)
Quarter: 2016Q1

REPORT INFORMATION
  Report Type: Spontaneous
  Country: US (occurrence: US)
  Receive Date: 20160113
  Receipt Date: 20160113
  Transmission Date: 20160526
  Serious: No
  Sender: FDA-Public Use
  Company Number: US-GLAXOSMITHKLINE-US2016001768

PATIENT
  Age: 25 Year
  Sex: Male

DRUGS (2)
  1. ADVAIR DISKUS [Suspect]
     Active Substance: FLUTICASONE PROPIONATE\SALMETEROL XINAFOATE
     Dosage: 200/50 MCG, UNK, U
  2. ADVAIR DISKUS [Suspect]
     Active Substance: FLUTICASONE PROPIONATE\SALMETEROL XINAFOATE
     Indication: PRODUCT USED FOR UNKNOWN INDICATION
     Dosage: 100/50 MCG, UNK, U

REACTIONS (7)
  - Tremor [Recovering/Resolving]
  - Pruritus [Recovering/Resolving]
  - Hypertension [Recovering/Resolving]
  - Blister [Recovering/Resolving]
  - Skin disorder [Recovering/Resolving]
  - Rash [Recovering/Resolving]
  - Lethargy [Recovering/Resolving]
